FAERS Safety Report 18464023 (Version 1)
Quarter: 2020Q4

REPORT INFORMATION
  Report Type: Report from Study
  Country: FR (occurrence: FR)
  Receive Date: 20201104
  Receipt Date: 20201104
  Transmission Date: 20210114
  Serious: Yes (Other)
  Sender: FDA-Public Use
  Company Number: FR-JAZZ-2019-FR-014585

PATIENT

DRUGS (2)
  1. URSODEOXYCHOLIC ACID [Concomitant]
     Active Substance: URSODIOL
  2. DEFITELIO [Suspect]
     Active Substance: DEFIBROTIDE SODIUM
     Indication: PROPHYLAXIS
     Dosage: 20 MG/KG, QD
     Dates: start: 20180403, end: 20180409

REACTIONS (2)
  - Intentional product use issue [Unknown]
  - Chronic graft versus host disease [Unknown]

NARRATIVE: CASE EVENT DATE: 20180403
